FAERS Safety Report 23869645 (Version 1)
Quarter: 2024Q2

REPORT INFORMATION
  Report Type: Spontaneous
  Country: US (occurrence: US)
  Receive Date: 20240517
  Receipt Date: 20240517
  Transmission Date: 20240716
  Serious: Yes (Other)
  Sender: FDA-Public Use
  Company Number: US-BIOGEN-2024BI01264305

PATIENT

DRUGS (1)
  1. TYSABRI [Suspect]
     Active Substance: NATALIZUMAB
     Indication: Crohn^s disease
     Route: 050

REACTIONS (4)
  - Encephalitis autoimmune [Unknown]
  - Focal dyscognitive seizures [Unknown]
  - Pain in extremity [Unknown]
  - Balance disorder [Unknown]
